FAERS Safety Report 20462126 (Version 1)
Quarter: 2022Q1

REPORT INFORMATION
  Report Type: Spontaneous
  Country: US (occurrence: None)
  Receive Date: 20220211
  Receipt Date: 20220211
  Transmission Date: 20220423
  Serious: No
  Sender: FDA-Public Use
  Company Number: US-Merck Healthcare KGaA-9297892

PATIENT
  Sex: Female

DRUGS (1)
  1. REBIF [Suspect]
     Active Substance: INTERFERON BETA-1A
     Indication: Multiple sclerosis
     Route: 058
     Dates: start: 20210224

REACTIONS (5)
  - Feeling abnormal [Unknown]
  - Memory impairment [Unknown]
  - Speech disorder [Unknown]
  - Influenza like illness [Unknown]
  - Injection site bruising [Unknown]
